FAERS Safety Report 16190104 (Version 12)
Quarter: 2021Q4

REPORT INFORMATION
  Report Type: Report from Study
  Country: DE (occurrence: DE)
  Receive Date: 20190412
  Receipt Date: 20211231
  Transmission Date: 20220303
  Serious: Yes (Death, Hospitalization, Other)
  Sender: FDA-Public Use
  Company Number: PHHY2019DE078818

PATIENT
  Age: 69 Year
  Sex: Male
  Weight: 77 kg

DRUGS (9)
  1. DEFERASIROX [Suspect]
     Active Substance: DEFERASIROX
     Indication: Myelodysplastic syndrome
     Dosage: 90 MG/KG (3.5 MG/KG, ((3.5MG/KG BODYWEIGHT/DAY= 3 TABLETS ??? 90MG))
     Route: 048
     Dates: start: 20190124, end: 20190316
  2. DEFERASIROX [Suspect]
     Active Substance: DEFERASIROX
     Dosage: (FREQENCY-0)
     Route: 048
     Dates: start: 20190317, end: 20190402
  3. DEFERASIROX [Suspect]
     Active Substance: DEFERASIROX
     Dosage: 25.97 MG/KG, BID
     Route: 048
     Dates: start: 20190403
  4. DESFERAL [Suspect]
     Active Substance: DEFEROXAMINE MESYLATE
     Indication: Myelodysplastic syndrome
     Dosage: 25.97 MG/KG, QD, BODY WEIGHT (250-UNITS NOT SPECIFIED)
     Route: 042
     Dates: start: 20190403
  5. RAMIPRIL [Concomitant]
     Active Substance: RAMIPRIL
     Indication: Hypertension
     Dosage: 5 MG, QD (1*1)
     Route: 048
     Dates: end: 20190317
  6. METOPROLOL [Concomitant]
     Active Substance: METOPROLOL
     Indication: Hypertension
     Dosage: 95 MG, QD
     Route: 048
  7. TORSEMIDE [Concomitant]
     Active Substance: TORSEMIDE
     Indication: Hypertension
     Dosage: 5 MG, QD
     Route: 048
     Dates: start: 20190102
  8. FOLIC ACID [Concomitant]
     Active Substance: FOLIC ACID
     Indication: Folate deficiency
     Dosage: 5 MG, QW
     Route: 048
     Dates: start: 20190222
  9. METHOTREXATE [Concomitant]
     Active Substance: METHOTREXATE
     Indication: Myelodysplastic syndrome
     Dosage: 20 MG, Q2W
     Route: 048
     Dates: start: 20190317

REACTIONS (7)
  - Pyrexia [Fatal]
  - Sepsis [Fatal]
  - Haemolysis [Recovered/Resolved]
  - Pyrexia [Recovered/Resolved]
  - Bronchitis [Recovered/Resolved]
  - Pyrexia [Recovered/Resolved]
  - Inappropriate schedule of product administration [Unknown]

NARRATIVE: CASE EVENT DATE: 20190317
